FAERS Safety Report 21177319 (Version 1)
Quarter: 2022Q3

REPORT INFORMATION
  Report Type: Spontaneous
  Country: US (occurrence: US)
  Receive Date: 20220805
  Receipt Date: 20220805
  Transmission Date: 20221027
  Serious: No
  Sender: FDA-Public Use
  Company Number: US-MAYNE PHARMA-2022MYN001191

PATIENT
  Age: 31 Year
  Sex: Female

DRUGS (3)
  1. NEXTSTELLIS [Suspect]
     Active Substance: DROSPIRENONE\ESTETROL MONOHYDRATE
     Indication: Contraception
     Dosage: 1 DF, DAILY
     Route: 048
     Dates: start: 20220603, end: 20220616
  2. LIPITOR [Concomitant]
     Active Substance: ATORVASTATIN CALCIUM
     Indication: Product used for unknown indication
     Dosage: UNK
     Route: 065
  3. TOPIRAMATE [Concomitant]
     Active Substance: TOPIRAMATE
     Indication: Product used for unknown indication
     Dosage: UNK
     Route: 065

REACTIONS (7)
  - Heart rate irregular [Unknown]
  - Tachycardia [Unknown]
  - Pain [Unknown]
  - Muscle rigidity [Unknown]
  - Temperature intolerance [Unknown]
  - Mood swings [Unknown]
  - Irritability [Unknown]
